FAERS Safety Report 9298521 (Version 2)
Quarter: 2013Q2

REPORT INFORMATION
  Report Type: Spontaneous
  Country: JP (occurrence: JP)
  Receive Date: 20130520
  Receipt Date: 20130524
  Transmission Date: 20140414
  Serious: Yes (Hospitalization)
  Sender: FDA-Public Use
  Company Number: PHHY2013JP049970

PATIENT
  Age: 28 Year
  Sex: Male

DRUGS (1)
  1. NEORAL [Suspect]
     Indication: MYASTHENIA GRAVIS
     Dosage: 150 MG,
     Route: 048
     Dates: start: 201303

REACTIONS (3)
  - Dysphagia [Recovering/Resolving]
  - Choking [Unknown]
  - Oral administration complication [Recovering/Resolving]
